FAERS Safety Report 9030812 (Version 2)
Quarter: 2013Q2

REPORT INFORMATION
  Report Type: Spontaneous
  Country: US (occurrence: US)
  Receive Date: 20130123
  Receipt Date: 20130402
  Transmission Date: 20140414
  Serious: Yes (Life-Threatening, Hospitalization)
  Sender: FDA-Public Use
  Company Number: US-ROCHE-1181438

PATIENT
  Age: 56 Year
  Sex: Female

DRUGS (1)
  1. ACTIVASE [Suspect]
     Indication: ISCHAEMIC STROKE
     Route: 065

REACTIONS (4)
  - Haemorrhage intracranial [Unknown]
  - Blood fibrinogen decreased [Recovered/Resolved]
  - Haemorrhage [Recovered/Resolved]
  - Product quality issue [Unknown]
